FAERS Safety Report 17680290 (Version 3)
Quarter: 2022Q4

REPORT INFORMATION
  Report Type: Report from Study
  Country: US (occurrence: US)
  Receive Date: 20200417
  Receipt Date: 20221114
  Transmission Date: 20230112
  Serious: Yes (Other)
  Sender: FDA-Public Use
  Company Number: US-SHIRE-US202000750

PATIENT
  Sex: Female

DRUGS (1)
  1. HUMAN IMMUNOGLOBULIN G [Suspect]
     Active Substance: HUMAN IMMUNOGLOBULIN G
     Indication: Hypogammaglobulinaemia
     Dosage: UNK
     Route: 042

REACTIONS (9)
  - Thrombosis [Unknown]
  - Autoimmune disorder [Unknown]
  - Antiphospholipid syndrome [Unknown]
  - Protein total abnormal [Unknown]
  - Memory impairment [Unknown]
  - Atrophy [Unknown]
  - Ill-defined disorder [Unknown]
  - Eczema [Unknown]
  - Skin infection [Unknown]
